FAERS Safety Report 24893207 (Version 1)
Quarter: 2025Q1

REPORT INFORMATION
  Report Type: Other
  Country: FR (occurrence: FR)
  Receive Date: 20250128
  Receipt Date: 20250128
  Transmission Date: 20250409
  Serious: Yes (Hospitalization)
  Sender: ALVOGEN
  Company Number: FR-ALVOGEN-2025096160

PATIENT
  Age: 32 Year
  Sex: Female

DRUGS (1)
  1. METHYLPHENIDATE [Suspect]
     Active Substance: METHYLPHENIDATE
     Indication: Disturbance in attention

REACTIONS (1)
  - Reversible cerebral vasoconstriction syndrome [Recovered/Resolved]
